FAERS Safety Report 10754098 (Version 1)
Quarter: 2015Q1

REPORT INFORMATION
  Report Type: Report from Study
  Country: DE (occurrence: DE)
  Receive Date: 20150202
  Receipt Date: 20150202
  Transmission Date: 20150721
  Serious: Yes (Death, Hospitalization, Other)
  Sender: FDA-Public Use
  Company Number: DE-009507513-2002-11-1972

PATIENT
  Age: 60 Year
  Sex: Male
  Weight: 98 kg

DRUGS (5)
  1. TEMOZOLOMIDE. [Suspect]
     Active Substance: TEMOZOLOMIDE
     Indication: ASTROCYTOMA
     Dosage: DOSE: 350 MG X5DAYS/MONTH, DURATION: 3 CYCLE(S)
     Route: 048
     Dates: start: 20020328, end: 20020720
  2. DIGITOXIN [Concomitant]
     Active Substance: DIGITOXIN
     Indication: ARTERIOSCLEROSIS CORONARY ARTERY
     Dosage: DOSE: 0.07 MG QD
     Route: 048
     Dates: start: 199101
  3. RAMIPRIL. [Concomitant]
     Active Substance: RAMIPRIL
     Indication: ARTERIOSCLEROSIS CORONARY ARTERY
     Dosage: DOSE: 2.5 MG QD
     Route: 048
     Dates: start: 199101
  4. ASPIRIN. [Concomitant]
     Active Substance: ASPIRIN
     Indication: ARTERIOSCLEROSIS CORONARY ARTERY
     Dosage: DOSE: 100 MG QD
     Route: 048
     Dates: start: 199101
  5. CORVATON [Concomitant]
     Active Substance: MOLSIDOMINE
     Indication: ARTERIOSCLEROSIS CORONARY ARTERY
     Dosage: DOSE: 8 MG QD
     Route: 048
     Dates: start: 199101

REACTIONS (8)
  - Vomiting [Unknown]
  - Spinal compression fracture [Unknown]
  - Dyspnoea [Unknown]
  - Nausea [Unknown]
  - Back pain [Unknown]
  - Diarrhoea [Unknown]
  - Acute myocardial infarction [Fatal]
  - Osteoporosis [Unknown]

NARRATIVE: CASE EVENT DATE: 20020720
